FAERS Safety Report 7073149 (Version 15)
Quarter: 2012Q4

REPORT INFORMATION
  Report Type: 
  Country: CA (occurrence: CA)
  Receive Date: 20090805
  Receipt Date: 20121109
  Transmission Date: 20130627
  Serious: Yes (Life-Threatening, Other)
  Sender: FDA-Public Use
  Company Number: PHHY2009CA21398

PATIENT
  Sex: Female

DRUGS (5)
  1. SANDOSTATIN LAR [Suspect]
     Indication: NEUROENDOCRINE CARCINOMA
     Dosage: 30 mg, UNK
     Route: 030
     Dates: start: 20080108
  2. SANDOSTATIN LAR [Suspect]
     Indication: CARCINOID SYNDROME
     Dosage: 30 mg, every 4 weeks
     Route: 030
     Dates: start: 20080115
  3. SANDOSTATIN LAR [Suspect]
     Dosage: 30 mg, QMO
     Route: 030
  4. SANDOSTATIN LAR [Suspect]
     Dosage: 30 mg, UNK
     Route: 030
  5. SANDOSTATIN LAR [Suspect]
     Dosage: 30 mg, BIW
     Route: 030

REACTIONS (29)
  - Jugular vein distension [Unknown]
  - Tremor [Unknown]
  - Somnolence [Unknown]
  - Malaise [Unknown]
  - Pallor [Unknown]
  - Oedema [Recovered/Resolved]
  - Hypertension [Unknown]
  - Headache [Unknown]
  - Dizziness [Unknown]
  - Heart rate decreased [Unknown]
  - Syncope [Recovered/Resolved]
  - Systemic lupus erythematosus [Recovered/Resolved]
  - Food poisoning [Recovered/Resolved]
  - Pain in extremity [Recovered/Resolved]
  - Local swelling [Recovered/Resolved]
  - Weight decreased [Unknown]
  - Peptic ulcer haemorrhage [Recovered/Resolved]
  - Haematemesis [Recovered/Resolved]
  - Abdominal pain upper [Recovered/Resolved]
  - Neoplasm progression [Unknown]
  - Malignant neoplasm progression [Unknown]
  - Lung neoplasm malignant [Unknown]
  - Breast mass [Unknown]
  - Blood glucose abnormal [Recovered/Resolved]
  - Tachycardia [Recovered/Resolved]
  - Diarrhoea [Recovered/Resolved]
  - Nausea [Not Recovered/Not Resolved]
  - Fatigue [Unknown]
  - Therapeutic response decreased [Unknown]
